FAERS Safety Report 6429342-5 (Version None)
Quarter: 2009Q4

REPORT INFORMATION
  Report Type: 
  Country: None (occurrence: None)
  Receive Date: 20091102
  Receipt Date: 20091020
  Transmission Date: 20100525
  Serious: Yes (Hospitalization)
  Sender: FDA-Public Use
  Company Number: 8053765

PATIENT
  Age: 49 Year
  Sex: Female

DRUGS (1)
  1. CIMZIA [Suspect]
     Dosage: 400 MG /M SC
     Route: 058
     Dates: start: 20090604

REACTIONS (3)
  - COLECTOMY [None]
  - SMALL INTESTINAL RESECTION [None]
  - TREATMENT FAILURE [None]
